FAERS Safety Report 10917381 (Version 1)
Quarter: 2015Q1

REPORT INFORMATION
  Report Type: Spontaneous
  Country: JP (occurrence: JP)
  Receive Date: 20150316
  Receipt Date: 20150316
  Transmission Date: 20150721
  Serious: Yes (Other)
  Sender: FDA-Public Use
  Company Number: JP-ASTRAZENECA-2015SE23569

PATIENT
  Age: 23124 Day
  Sex: Male

DRUGS (7)
  1. DECADRON [Suspect]
     Active Substance: DEXAMETHASONE
     Route: 065
  2. VICCILLIN [Concomitant]
     Active Substance: AMPICILLIN
  3. MEROPEN [Suspect]
     Active Substance: MEROPENEM
     Indication: MENINGITIS BACTERIAL
     Route: 042
     Dates: start: 20150117, end: 20150228
  4. REMINARON [Concomitant]
     Active Substance: GABEXATE MESYLATE
  5. FESIN [Concomitant]
     Active Substance: IRON SUCROSE
  6. TRANSAMIN [Concomitant]
     Active Substance: TRANEXAMIC ACID
  7. VANCOMYCIN HYDROCHLORIDE. [Concomitant]
     Active Substance: VANCOMYCIN HYDROCHLORIDE

REACTIONS (2)
  - Gastrointestinal haemorrhage [Unknown]
  - Duodenal ulcer [Recovering/Resolving]

NARRATIVE: CASE EVENT DATE: 20150128
